FAERS Safety Report 9576020 (Version 1)
Quarter: 2013Q4

REPORT INFORMATION
  Report Type: Spontaneous
  Country: US (occurrence: US)
  Receive Date: 20131001
  Receipt Date: 20131001
  Transmission Date: 20140711
  Serious: No
  Sender: FDA-Public Use
  Company Number: US-AMGEN-USASP2013000485

PATIENT
  Sex: Female
  Weight: 86.17 kg

DRUGS (6)
  1. ENBREL [Suspect]
     Indication: RHEUMATOID ARTHRITIS
     Dosage: 50 MG, QWK
     Route: 058
  2. NEURONTIN [Concomitant]
     Dosage: 100 MG, UNK
  3. EFFEXOR [Concomitant]
     Dosage: 75 MG, UNK
  4. LORTAB                             /00607101/ [Concomitant]
     Dosage: 5-500 MG, UNK
  5. ENALAPRIL [Concomitant]
     Dosage: 5 MG, UNK
  6. ROBAXIN [Concomitant]
     Dosage: 500 MG, UNK

REACTIONS (3)
  - Blood glucose abnormal [Unknown]
  - Red blood cell sedimentation rate increased [Unknown]
  - Rheumatoid arthritis [Unknown]
